FAERS Safety Report 6820964-6 (Version None)
Quarter: 2010Q3

REPORT INFORMATION
  Report Type: 
  Country: None (occurrence: None)
  Receive Date: 20100707
  Receipt Date: 20070815
  Transmission Date: 20110219
  Serious: No
  Sender: FDA-Public Use
  Company Number: US-PFIZER INC-2007068784

PATIENT
  Sex: Female
  Weight: 64 kg

DRUGS (3)
  1. ZOLOFT [Suspect]
     Indication: POST-TRAUMATIC STRESS DISORDER
     Dates: start: 20070601
  2. ZOLOFT [Suspect]
     Indication: DEPRESSION
  3. MULTI-VITAMINS [Concomitant]

REACTIONS (1)
  - FATIGUE [None]
